FAERS Safety Report 4707454-1 (Version None)
Quarter: 2005Q3

REPORT INFORMATION
  Report Type: 
  Country: None (occurrence: None)
  Receive Date: 20050701
  Receipt Date: 20050621
  Transmission Date: 20060218
  Serious: Yes (Death)
  Sender: FDA-Public Use
  Company Number: TNZCA200500068

PATIENT

DRUGS (2)
  1. INNOHEP [Suspect]
     Dosage: 175 IU/KG (ONCE DAILY), SUBCUTANEOUS
     Route: 058
  2. WARFARIN SODIUM (WARFARIN SODIUM) (TABLETS) [Concomitant]

REACTIONS (2)
  - CEREBRAL HAEMORRHAGE [None]
  - CEREBROVASCULAR DISORDER [None]
